FAERS Safety Report 8475841-4 (Version None)
Quarter: 2012Q2

REPORT INFORMATION
  Report Type: 
  Country: None (occurrence: None)
  Receive Date: 20120628
  Receipt Date: 20120619
  Transmission Date: 20120825
  Serious: Yes (Hospitalization)
  Sender: FDA-Public Use
  Company Number: JP-ASTRAZENECA-2012SE39841

PATIENT
  Age: 901 Month
  Sex: Female
  Weight: 35 kg

DRUGS (9)
  1. OLMETEC [Concomitant]
     Indication: HYPERTENSION
     Route: 048
     Dates: start: 20120403
  2. MAGMITT [Concomitant]
     Indication: CONSTIPATION
     Route: 048
     Dates: start: 20111024, end: 20111201
  3. RIKKUNSHITO [Concomitant]
     Indication: NAUSEA
     Route: 048
     Dates: start: 20120306
  4. NEXIUM [Suspect]
     Indication: GASTROOESOPHAGEAL REFLUX DISEASE
     Route: 048
     Dates: start: 20111012, end: 20120612
  5. MAGMITT [Concomitant]
     Route: 048
     Dates: start: 20111201
  6. TRANDOLAPRIL [Concomitant]
     Indication: HYPERTENSION
     Route: 048
     Dates: start: 20091020, end: 20120403
  7. TRICHLORMETHIAZIDE [Suspect]
     Indication: HYPERTENSION
     Route: 048
     Dates: start: 20110107, end: 20120403
  8. HALCION [Concomitant]
     Indication: INSOMNIA
     Route: 048
     Dates: start: 20120306, end: 20120417
  9. AMOBAN [Concomitant]
     Indication: INSOMNIA
     Route: 048
     Dates: start: 20120501, end: 20120515

REACTIONS (4)
  - LOSS OF CONSCIOUSNESS [None]
  - FAECAL INCONTINENCE [None]
  - DECREASED APPETITE [None]
  - HYPONATRAEMIA [None]
